FAERS Safety Report 10478697 (Version 1)
Quarter: 2014Q3

REPORT INFORMATION
  Report Type: Spontaneous
  Country: IT (occurrence: IT)
  Receive Date: 20140926
  Receipt Date: 20140926
  Transmission Date: 20150326
  Serious: Yes (Hospitalization)
  Sender: FDA-Public Use
  Company Number: PHHY2014IT117051

PATIENT
  Age: 39 Year
  Sex: Female

DRUGS (3)
  1. MAPROTILINE [Suspect]
     Active Substance: MAPROTILINE
     Dosage: 50 MG, 140 CAPSULES
  2. PERPHENAZINE. [Suspect]
     Active Substance: PERPHENAZINE
     Dosage: 2 MG, (40 OF)
  3. CLORDESMETHYLDIAZEPAM [Suspect]
     Active Substance: DIAZEPAM
     Dosage: 20 MG,(3 PHIALS)

REACTIONS (9)
  - Toxicity to various agents [Unknown]
  - Metabolic acidosis [None]
  - Overdose [Unknown]
  - Intentional overdose [None]
  - Coma [Unknown]
  - Electrocardiogram QT prolonged [Unknown]
  - Suicide attempt [Unknown]
  - Electrocardiogram ST segment elevation [Unknown]
  - Bundle branch block right [None]
